FAERS Safety Report 5035554-8 (Version None)
Quarter: 2006Q2

REPORT INFORMATION
  Report Type: 
  Country: None (occurrence: None)
  Receive Date: 20060622
  Receipt Date: 20060614
  Transmission Date: 20061013
  Serious: Yes (Disabling)
  Sender: FDA-Public Use
  Company Number: 2006-06-0376

PATIENT
  Age: 41 Year
  Sex: Male

DRUGS (2)
  1. INTRON A [Suspect]
     Indication: HAEMANGIOMA
     Dosage: 2.5 MIU BIW SUBCUTANEOUS
     Route: 058
     Dates: start: 20060502, end: 20060601
  2. INTRON A [Suspect]
     Indication: LYMPHANGIOMA
     Dosage: 2.5 MIU BIW SUBCUTANEOUS
     Route: 058
     Dates: start: 20060502, end: 20060601

REACTIONS (2)
  - BLINDNESS UNILATERAL [None]
  - RETINAL ARTERY OCCLUSION [None]
